FAERS Safety Report 4385008-7 (Version None)
Quarter: 2004Q2

REPORT INFORMATION
  Report Type: 
  Country: None (occurrence: None)
  Receive Date: 20040623
  Receipt Date: 20040623
  Transmission Date: 20050107
  Serious: No
  Sender: FDA-Public Use
  Company Number: None

PATIENT
  Age: 36 Year
  Weight: 55.3388 kg

DRUGS (1)
  1. CLOZAPINE  100MG [Suspect]
     Indication: SCHIZOPHRENIA

REACTIONS (3)
  - DISEASE RECURRENCE [None]
  - PHARMACEUTICAL PRODUCT COMPLAINT [None]
  - PSYCHOTIC DISORDER [None]
